FAERS Safety Report 8002801-X (Version None)
Quarter: 2011Q4

REPORT INFORMATION
  Report Type: 
  Country: None (occurrence: None)
  Receive Date: 20111222
  Receipt Date: 20110316
  Transmission Date: 20120403
  Serious: No
  Sender: FDA-Public Use
  Company Number: US-GLAXOSMITHKLINE-A0740280A

PATIENT
  Age: 64 Year
  Sex: Male

DRUGS (9)
  1. LORTAB [Concomitant]
  2. AVODART [Suspect]
     Indication: BENIGN PROSTATIC HYPERPLASIA
     Dosage: .5MG PER DAY
     Route: 048
     Dates: start: 20070801
  3. ASPIRIN [Concomitant]
  4. OMEPRAZOLE [Concomitant]
  5. ZOCOR [Concomitant]
  6. SIMVASTATIN [Concomitant]
  7. DARVOCET [Concomitant]
  8. LISINOPRIL [Concomitant]
  9. UROXATRAL [Concomitant]

REACTIONS (4)
  - LIBIDO DECREASED [None]
  - PROSTATOMEGALY [None]
  - EJACULATION FAILURE [None]
  - DRUG INEFFECTIVE [None]
